FAERS Safety Report 8180823-6 (Version None)
Quarter: 2012Q1

REPORT INFORMATION
  Report Type: 
  Country: None (occurrence: None)
  Receive Date: 20120302
  Receipt Date: 20120117
  Transmission Date: 20120608
  Serious: Yes (Other)
  Sender: FDA-Public Use
  Company Number: JP-ROCHE-1043966

PATIENT

DRUGS (6)
  1. LEUCOVORIN CALCIUM [Suspect]
     Indication: COLORECTAL CANCER
  2. FLUOROURACIL [Suspect]
     Indication: COLORECTAL CANCER
  3. IRINOTECAN HCL [Suspect]
     Indication: COLORECTAL CANCER
     Dosage: DAY 1
  4. AVASTIN [Suspect]
     Indication: COLORECTAL CANCER
     Dosage: DAY 1
  5. FLUOROURACIL [Suspect]
  6. OXALIPLATIN [Suspect]
     Indication: COLORECTAL CANCER

REACTIONS (14)
  - ANAEMIA [None]
  - STOMATITIS [None]
  - HYPERTENSION [None]
  - FEBRILE NEUTROPENIA [None]
  - NAUSEA [None]
  - NEUTROPENIA [None]
  - FATIGUE [None]
  - DECREASED APPETITE [None]
  - DIARRHOEA [None]
  - EMBOLISM [None]
  - HYPERSENSITIVITY [None]
  - LEUKOPENIA [None]
  - NEUROTOXICITY [None]
  - VOMITING [None]
